FAERS Safety Report 8623103-4 (Version None)
Quarter: 2012Q3

REPORT INFORMATION
  Report Type: 
  Country: None (occurrence: None)
  Receive Date: 20120827
  Receipt Date: 20120717
  Transmission Date: 20120928
  Serious: Yes (Hospitalization)
  Sender: FDA-Public Use
  Company Number: BR-ELI_LILLY_AND_COMPANY-BR201108005750

PATIENT
  Sex: Male
  Weight: 80.7 kg

DRUGS (8)
  1. HUMALOG [Suspect]
     Dosage: 30 IU, UNKNOWN
     Route: 065
  2. CAPTOPRIL [Concomitant]
     Indication: HYPERTENSION
     Dosage: UNK, UNKNOWN
     Route: 065
     Dates: start: 20110324
  3. HUMALOG [Suspect]
     Indication: DIABETES MELLITUS
     Dosage: UNK, UNKNOWN
     Route: 065
     Dates: start: 20110419
  4. HUMALOG [Suspect]
     Dosage: 18 IU, UNKNOWN
     Route: 065
  5. SIMVASTATIN [Concomitant]
     Indication: DYSLIPIDAEMIA
     Dosage: UNK, UNKNOWN
     Route: 065
     Dates: start: 20110604
  6. HUMALOG [Suspect]
     Dosage: 27 IU, UNKNOWN
     Route: 065
  7. PROPRANOLOL [Concomitant]
     Indication: HYPERTENSION
     Dosage: UNK, UNKNOWN
     Route: 065
     Dates: start: 20110505
  8. HYDROCHLOROTHIAZIDE [Concomitant]
     Indication: HYPERTENSION
     Dosage: UNK, UNKNOWN
     Route: 065
     Dates: start: 20110216

REACTIONS (10)
  - FALL [None]
  - PNEUMONIA [None]
  - STERNAL FRACTURE [None]
  - BACK PAIN [None]
  - RIB FRACTURE [None]
  - PLEURAL EFFUSION [None]
  - HYPOGLYCAEMIA [None]
  - LUNG NEOPLASM [None]
  - RENAL CYST [None]
  - NECK PAIN [None]
